FAERS Safety Report 5721585-9 (Version None)
Quarter: 2008Q2

REPORT INFORMATION
  Report Type: 
  Country: None (occurrence: None)
  Receive Date: 20080429
  Receipt Date: 20071228
  Transmission Date: 20081010
  Serious: No
  Sender: FDA-Public Use
  Company Number: US-ASTRAZENECA-2001UW13027

PATIENT
  Age: 84 Year
  Sex: Female
  Weight: 77.3 kg

DRUGS (11)
  1. NEXIUM [Suspect]
     Indication: GASTROOESOPHAGEAL REFLUX DISEASE
     Route: 048
     Dates: start: 20010925, end: 20011012
  2. NEXIUM [Suspect]
     Indication: GASTRIC ULCER
     Route: 048
     Dates: start: 20010925, end: 20011012
  3. NEXIUM [Suspect]
     Route: 048
     Dates: start: 20011101
  4. NEXIUM [Suspect]
     Route: 048
     Dates: start: 20011101
  5. NEXIUM [Suspect]
     Route: 048
     Dates: start: 20071222
  6. NEXIUM [Suspect]
     Route: 048
     Dates: start: 20071222
  7. TENORMIN [Concomitant]
  8. COLYTE [Concomitant]
  9. ASPIRIN [Concomitant]
  10. METOPROLOL TARTRATE [Concomitant]
  11. NORVASC [Concomitant]

REACTIONS (3)
  - CHEST PAIN [None]
  - DYSPEPSIA [None]
  - ORAL PAIN [None]
